FAERS Safety Report 11855400 (Version 1)
Quarter: 2015Q4

REPORT INFORMATION
  Report Type: Spontaneous
  Country: IR (occurrence: IR)
  Receive Date: 20151221
  Receipt Date: 20151221
  Transmission Date: 20160305
  Serious: Yes (Hospitalization)
  Sender: FDA-Public Use
  Company Number: IR-MYLANLABS-2015M1045723

PATIENT

DRUGS (2)
  1. SODIUM CHLORIDE. [Suspect]
     Active Substance: SODIUM CHLORIDE
     Indication: HYPONATRAEMIA
     Route: 042
  2. DESMOPRESSIN [Suspect]
     Active Substance: DESMOPRESSIN
     Indication: DIABETES INSIPIDUS
     Route: 045

REACTIONS (3)
  - Hyponatraemia [Recovered/Resolved]
  - Demyelination [Recovering/Resolving]
  - Rapid correction of hyponatraemia [Recovering/Resolving]
